FAERS Safety Report 23029377 (Version 1)
Quarter: 2023Q4

REPORT INFORMATION
  Report Type: Spontaneous
  Country: BR (occurrence: BR)
  Receive Date: 20231004
  Receipt Date: 20231004
  Transmission Date: 20240110
  Serious: Yes (Other)
  Sender: FDA-Public Use
  Company Number: BR-PFIZER INC-PV202300163466

PATIENT
  Age: 73 Year
  Sex: Male
  Weight: 84.4 kg

DRUGS (12)
  1. INLYTA [Suspect]
     Active Substance: AXITINIB
     Indication: Renal cancer metastatic
     Dosage: 2 DF, DAILY (EVERY 12 HOURS)
     Dates: start: 20230619
  2. SYNTHROID [Concomitant]
     Active Substance: LEVOTHYROXINE SODIUM
     Indication: Thyroid disorder
     Dosage: 1 DF, DAILY (IN FASTING)
  3. ASPIRIN [Concomitant]
     Active Substance: ASPIRIN
     Indication: Anticoagulant therapy
     Dosage: 1 DF, DAILY (AT LUNCHTIME)
  4. SPIRONOLACTONE [Concomitant]
     Active Substance: SPIRONOLACTONE
     Indication: Hypertension
     Dosage: 2 DF, 1X/DAY (IN THE MORNING)
  5. OLMESARTAN [Concomitant]
     Active Substance: OLMESARTAN
     Indication: Hypertension
     Dosage: 1 DF, DAILY (IN THE MORNING)
  6. NEBIVOLOL HYDROCHLORIDE [Concomitant]
     Active Substance: NEBIVOLOL HYDROCHLORIDE
     Indication: Hypertension
     Dosage: HALF DF, DAILY IN THE MORNING
  7. CHLORTHALIDONE [Concomitant]
     Active Substance: CHLORTHALIDONE
     Indication: Hypertension
     Dosage: 1 DF, DAILY (IN THE MORNING)
  8. ESCITALOPRAM OXALATE [Concomitant]
     Active Substance: ESCITALOPRAM OXALATE
     Indication: Depression
     Dosage: 1 DF, DAILY IN THE MORNING
  9. QUETIAPINE [Concomitant]
     Active Substance: QUETIAPINE
     Indication: Depression
     Dosage: HALF DF, DAILY BEFORE BEDTIME
  10. VYTORIN [Concomitant]
     Active Substance: EZETIMIBE\SIMVASTATIN
  11. AVODART [Concomitant]
     Active Substance: DUTASTERIDE
  12. DPREV [Concomitant]

REACTIONS (4)
  - Dermatitis exfoliative [Unknown]
  - Decreased appetite [Unknown]
  - Diarrhoea [Unknown]
  - Eyelid disorder [Unknown]
